FAERS Safety Report 13239662 (Version 1)
Quarter: 2017Q1

REPORT INFORMATION
  Report Type: Spontaneous
  Country: US (occurrence: US)
  Receive Date: 20170216
  Receipt Date: 20170216
  Transmission Date: 20170428
  Serious: No
  Sender: FDA-Public Use
  Company Number: US-RELYPSA-RLY2016003484

PATIENT
  Age: 85 Year
  Sex: Female

DRUGS (19)
  1. ZEMPLAR [Concomitant]
     Active Substance: PARICALCITOL
  2. ATENOLOL. [Concomitant]
     Active Substance: ATENOLOL
  3. TRAMADOL. [Concomitant]
     Active Substance: TRAMADOL
  4. PERCOCET [Concomitant]
     Active Substance: ACETAMINOPHEN\OXYCODONE HYDROCHLORIDE
  5. COLACE [Concomitant]
     Active Substance: DOCUSATE SODIUM
  6. KAYEXALATE [Concomitant]
     Active Substance: SODIUM POLYSTYRENE SULFONATE
  7. IRON [Concomitant]
     Active Substance: IRON
  8. VOLTAREN [Concomitant]
     Active Substance: DICLOFENAC SODIUM
  9. LACTOSE [Concomitant]
     Active Substance: LACTOSE
  10. VELTASSA [Suspect]
     Active Substance: PATIROMER
     Indication: HYPERKALAEMIA
     Dosage: 8.4 G, QD
     Route: 048
     Dates: start: 201610, end: 201610
  11. VELTASSA [Suspect]
     Active Substance: PATIROMER
     Dosage: 8.4 G, TID
     Route: 048
     Dates: start: 201610
  12. VELTASSA [Suspect]
     Active Substance: PATIROMER
     Dosage: 8.4 G, BID
     Route: 048
     Dates: start: 201610, end: 201610
  13. CALCIUM ACETATE. [Concomitant]
     Active Substance: CALCIUM ACETATE
  14. PLAVIX [Concomitant]
     Active Substance: CLOPIDOGREL BISULFATE
  15. OXYCODONE [Concomitant]
     Active Substance: OXYCODONE
  16. ZOLOFT [Concomitant]
     Active Substance: SERTRALINE HYDROCHLORIDE
  17. PANTOPRAZOLE [Concomitant]
     Active Substance: PANTOPRAZOLE SODIUM
  18. BICARBONATE [Concomitant]
     Active Substance: BICARBONATE ION
  19. SYNTHROID [Concomitant]
     Active Substance: LEVOTHYROXINE SODIUM

REACTIONS (3)
  - Constipation [Not Recovered/Not Resolved]
  - Blood potassium increased [Unknown]
  - Inappropriate schedule of drug administration [Not Recovered/Not Resolved]

NARRATIVE: CASE EVENT DATE: 201610
